FAERS Safety Report 19202691 (Version 1)
Quarter: 2021Q2

REPORT INFORMATION
  Report Type: Report from Study
  Country: AR (occurrence: AR)
  Receive Date: 20210502
  Receipt Date: 20210502
  Transmission Date: 20210717
  Serious: Yes (Hospitalization, Other)
  Sender: FDA-Public Use
  Company Number: NVSC2021AR092877

PATIENT
  Sex: Female

DRUGS (2)
  1. DIOVAN [Suspect]
     Active Substance: VALSARTAN
     Indication: BLOOD PRESSURE INCREASED
     Dosage: (OVER 5 YEARS AGO)
     Route: 065
  2. DIOVAN D [Suspect]
     Active Substance: HYDROCHLOROTHIAZIDE\VALSARTAN
     Indication: BLOOD PRESSURE INCREASED
     Dosage: 1 DF, QD (320/25 MG) (OVER 5 YRS AGO)
     Route: 065

REACTIONS (4)
  - Product dispensing error [Unknown]
  - Uterine cancer [Recovering/Resolving]
  - Memory impairment [Unknown]
  - Diabetes mellitus [Unknown]
